FAERS Safety Report 10420855 (Version 7)
Quarter: 2015Q2

REPORT INFORMATION
  Report Type: Spontaneous
  Country: US (occurrence: None)
  Receive Date: 20140812
  Receipt Date: 20150414
  Transmission Date: 20150821
  Serious: Yes (Hospitalization, Disabling, Other)
  Sender: FDA-Public Use
  Company Number: 003-220

PATIENT
  Age: 8 Year
  Sex: Male

DRUGS (1)
  1. CROFAB [Suspect]
     Active Substance: CROTALIDAE POLYVALENT IMMUNE FAB (OVINE)
     Indication: SNAKE BITE
     Dates: start: 20140804

REACTIONS (6)
  - International normalised ratio decreased [None]
  - Prothrombin time prolonged [None]
  - Swelling [None]
  - Compartment syndrome [None]
  - Haemoglobin decreased [None]
  - Pain [None]

NARRATIVE: CASE EVENT DATE: 20140804
